FAERS Safety Report 6123761-2 (Version None)
Quarter: 2009Q1

REPORT INFORMATION
  Report Type: 
  Country: None (occurrence: None)
  Receive Date: 20090319
  Receipt Date: 20090317
  Transmission Date: 20090719
  Serious: Yes (Death)
  Sender: FDA-Public Use
  Company Number: US-ASTRAZENECA-2009UW06877

PATIENT
  Sex: Male

DRUGS (4)
  1. SEROQUEL [Suspect]
     Indication: POST-TRAUMATIC STRESS DISORDER
     Route: 048
  2. PAXIL [Suspect]
     Indication: POST-TRAUMATIC STRESS DISORDER
  3. CLONAZEPAM [Suspect]
     Indication: POST-TRAUMATIC STRESS DISORDER
  4. PAIN MEDICATION [Suspect]

REACTIONS (3)
  - DEATH [None]
  - DRUG TOXICITY [None]
  - WRONG DRUG ADMINISTERED [None]
